FAERS Safety Report 8647110 (Version 4)
Quarter: 2013Q2

REPORT INFORMATION
  Report Type: Report from Study
  Country: US (occurrence: US)
  Receive Date: 20120703
  Receipt Date: 20130521
  Transmission Date: 20140414
  Serious: Yes (Other)
  Sender: FDA-Public Use
  Company Number: US-ACTELION-A-US2012-67910

PATIENT
  Age: 68 Year
  Sex: Female

DRUGS (1)
  1. TRACLEER [Suspect]
     Indication: PULMONARY ARTERIAL HYPERTENSION
     Dosage: UNK
     Route: 048

REACTIONS (15)
  - Parkinson^s disease [Unknown]
  - Head injury [Unknown]
  - Fall [Unknown]
  - Rotator cuff syndrome [Unknown]
  - Cellulitis [Unknown]
  - Limb injury [Unknown]
  - Dyspnoea [Unknown]
  - Chest pain [Unknown]
  - Dizziness exertional [Unknown]
  - Pyrexia [Unknown]
  - Nasopharyngitis [Unknown]
  - Shoulder operation [Unknown]
  - Nausea [Unknown]
  - Blood glucose increased [Unknown]
  - Dizziness [Unknown]
